FAERS Safety Report 7287728 (Version 6)
Quarter: 2013Q4

REPORT INFORMATION
  Report Type: Report from Study
  Country: JP (occurrence: JP)
  Receive Date: 20100222
  Receipt Date: 20131113
  Transmission Date: 20140711
  Serious: Yes (Death, Life-Threatening, Hospitalization)
  Sender: FDA-Public Use
  Company Number: JP-BRISTOL-MYERS SQUIBB COMPANY-14618953

PATIENT
  Age: 67 Year
  Sex: Male

DRUGS (12)
  1. SPRYCEL [Suspect]
     Indication: CHRONIC MYELOID LEUKAEMIA
     Dosage: 19MAR09-20MAR09.(70 MG X2/D)DURA:2DAYS;24MR09-UNK (50MG X2/D);10JL-14AU09.?24MAR09-ONG:50MGX2/D
     Route: 048
     Dates: start: 20090319, end: 20090814
  2. FILDESIN [Suspect]
     Indication: CHRONIC MYELOID LEUKAEMIA
     Route: 042
     Dates: start: 20090403, end: 20090417
  3. PREDONINE [Concomitant]
     Route: 048
     Dates: start: 20081031, end: 20090418
  4. ITRIZOLE [Concomitant]
     Route: 048
     Dates: end: 20090331
  5. BAKTAR [Concomitant]
     Indication: INFECTION PROPHYLAXIS
     Dosage: 1 DF = 1 TABLET
     Route: 048
     Dates: end: 20090418
  6. VINCRISTINE [Concomitant]
     Dates: start: 20081031, end: 20090304
  7. IMATINIB MESILATE [Concomitant]
     Dates: start: 20080822, end: 20090318
  8. ZYLORIC [Concomitant]
     Dosage: 1DF=3TABLETS
     Route: 048
     Dates: start: 20090403, end: 20090418
  9. MERCAPTOPURINE [Concomitant]
     Indication: CHRONIC MYELOID LEUKAEMIA
     Dosage: MERCAPTOPURINE HYDRATE POWDER 08MAY09-UNK;10JUL09TO14AUG09.
     Route: 048
     Dates: start: 20090508, end: 20090814
  10. FILGRASTIM [Concomitant]
     Dosage: INJ
     Route: 058
     Dates: start: 20090519, end: 20090621
  11. SERENACE [Concomitant]
     Indication: PROPHYLAXIS
     Route: 048
     Dates: start: 20090414, end: 20090418
  12. BIOFERMIN R [Concomitant]
     Indication: INFECTION PROPHYLAXIS
     Route: 048
     Dates: start: 20090420, end: 20090901

REACTIONS (18)
  - Malignant neoplasm progression [Fatal]
  - Sepsis [Recovering/Resolving]
  - Febrile neutropenia [Not Recovered/Not Resolved]
  - Gastrointestinal haemorrhage [Recovering/Resolving]
  - Pneumonia [Recovering/Resolving]
  - Bronchopulmonary aspergillosis [Recovering/Resolving]
  - White blood cell count decreased [Not Recovered/Not Resolved]
  - Neutrophil count decreased [Not Recovered/Not Resolved]
  - Platelet count decreased [Not Recovered/Not Resolved]
  - Anaemia [Recovering/Resolving]
  - Decreased appetite [Not Recovered/Not Resolved]
  - Generalised oedema [Recovered/Resolved]
  - Nausea [Recovered/Resolved]
  - Diarrhoea [Recovered/Resolved]
  - Aspartate aminotransferase increased [Not Recovered/Not Resolved]
  - Alanine aminotransferase increased [Not Recovered/Not Resolved]
  - Blood alkaline phosphatase increased [Not Recovered/Not Resolved]
  - Hyperbilirubinaemia [Unknown]
